FAERS Safety Report 4815055-X (Version None)
Quarter: 2005Q4

REPORT INFORMATION
  Report Type: 
  Country: None (occurrence: None)
  Receive Date: 20051026
  Receipt Date: 20051006
  Transmission Date: 20060501
  Serious: Yes (Hospitalization, Other)
  Sender: FDA-Public Use
  Company Number: EWC051046368

PATIENT
  Age: 46 Year
  Sex: Female

DRUGS (5)
  1. ZYPREXA [Suspect]
     Indication: MAJOR DEPRESSION
     Dosage: 15 MG DAY
  2. ANAFRANIL [Concomitant]
  3. EFFEXOR [Concomitant]
  4. ZOLOFT [Concomitant]
  5. REMERON [Concomitant]

REACTIONS (6)
  - FALL [None]
  - FEAR [None]
  - FEELING ABNORMAL [None]
  - MULTIPLE FRACTURES [None]
  - SPINAL FRACTURE [None]
  - SUICIDE ATTEMPT [None]
